FAERS Safety Report 21488779 (Version 4)
Quarter: 2023Q2

REPORT INFORMATION
  Report Type: Spontaneous
  Country: IE (occurrence: IE)
  Receive Date: 20221021
  Receipt Date: 20230412
  Transmission Date: 20230721
  Serious: Yes (Other)
  Sender: FDA-Public Use
  Company Number: None

PATIENT

DRUGS (18)
  1. PREDNISOLONE [Suspect]
     Active Substance: PREDNISOLONE
     Indication: Diffuse large B-cell lymphoma
     Dosage: 1 CYCLICAL(R-EPOCH)
  2. PREDNISOLONE [Suspect]
     Active Substance: PREDNISOLONE
     Dosage: UNK, DE-ESCALATED (R-CHOP)
  3. PREDNISOLONE [Suspect]
     Active Substance: PREDNISOLONE
     Dosage: UNK, DE-ESCALATED TO R-MINI-CHOP
  4. METHOTREXATE [Suspect]
     Active Substance: METHOTREXATE
     Indication: Diffuse large B-cell lymphoma
     Dosage: UNK
     Route: 037
  5. METHOTREXATE [Suspect]
     Active Substance: METHOTREXATE
     Indication: Prophylaxis
  6. ETOPOSIDE [Suspect]
     Active Substance: ETOPOSIDE
     Indication: Diffuse large B-cell lymphoma
     Dosage: 1 CYCLICAL( R-EPOCH)
  7. RITUXIMAB [Suspect]
     Active Substance: RITUXIMAB
     Indication: Diffuse large B-cell lymphoma
     Dosage: 1 CYCLICAL( R-EPOCH)
  8. RITUXIMAB [Suspect]
     Active Substance: RITUXIMAB
     Dosage: UNK, DE-ESCALATED (R-CHOP)
  9. RITUXIMAB [Suspect]
     Active Substance: RITUXIMAB
     Dosage: UNK, DE-ESCALATED TO R-MINI-CHOP
  10. VINCRISTINE [Suspect]
     Active Substance: VINCRISTINE
     Indication: Diffuse large B-cell lymphoma
     Dosage: 1 CYCLICAL(R-EPOCH)
  11. VINCRISTINE [Suspect]
     Active Substance: VINCRISTINE
     Dosage: UNK, DE-ESCALATED (R-CHOP)
  12. VINCRISTINE [Suspect]
     Active Substance: VINCRISTINE
     Dosage: UNK, DE-ESCALATED TO R-MINI-CHOP
  13. CYCLOPHOSPHAMIDE [Suspect]
     Active Substance: CYCLOPHOSPHAMIDE
     Indication: Diffuse large B-cell lymphoma
     Dosage: 1 CYCLICAL(R-EPOCH)
  14. CYCLOPHOSPHAMIDE [Suspect]
     Active Substance: CYCLOPHOSPHAMIDE
     Dosage: UNK, DE-ESCALATED (R-CHOP)
  15. CYCLOPHOSPHAMIDE [Suspect]
     Active Substance: CYCLOPHOSPHAMIDE
     Dosage: UNK, DE-ESCALATED TO R-MINI-CHOP
  16. DOXORUBICIN HYDROCHLORIDE [Suspect]
     Active Substance: DOXORUBICIN HYDROCHLORIDE
     Indication: Diffuse large B-cell lymphoma
     Dosage: 1 CYCLICAL( R-EPOCH)
  17. DOXORUBICIN HYDROCHLORIDE [Suspect]
     Active Substance: DOXORUBICIN HYDROCHLORIDE
     Dosage: UNK, DE-ESCALATED (R-CHOP)
  18. DOXORUBICIN HYDROCHLORIDE [Suspect]
     Active Substance: DOXORUBICIN HYDROCHLORIDE
     Dosage: UNK, DE-ESCALATED TO R-MINI-CHOP

REACTIONS (1)
  - Neutropenic sepsis [Unknown]
